FAERS Safety Report 4621477-2 (Version None)
Quarter: 2005Q1

REPORT INFORMATION
  Report Type: 
  Country: None (occurrence: None)
  Receive Date: 20050328
  Receipt Date: 20050316
  Transmission Date: 20050727
  Serious: No
  Sender: FDA-Public Use
  Company Number: B0374955A

PATIENT
  Age: 78 Year
  Sex: Female

DRUGS (2)
  1. FORTAZ [Suspect]
     Indication: ENDOPHTHALMITIS
     Dosage: SUBCONJUNCTIVAL
     Route: 057
  2. VANCOMYCIN UNSPECIFIED INJECTABLE (VANCOMHCIN) [Suspect]
     Indication: ENDOPHTHALMITIS
     Dosage: SUBCONJUNTIVAL

REACTIONS (3)
  - DRUG PHYSIOLOGIC INCOMPATIBILITY [None]
  - MEDICATION RESIDUE [None]
  - PROCEDURAL COMPLICATION [None]
